FAERS Safety Report 10083757 (Version 1)
Quarter: 2014Q2

REPORT INFORMATION
  Report Type: Spontaneous
  Country: US (occurrence: US)
  Receive Date: 20140417
  Receipt Date: 20140417
  Transmission Date: 20141212
  Serious: Yes (Hospitalization)
  Sender: FDA-Public Use
  Company Number: US-BAYER-2014-056459

PATIENT
  Age: 23 Year
  Sex: Female

DRUGS (4)
  1. YASMIN [Suspect]
  2. NOVOLOG [Concomitant]
     Dosage: 12 U, BID
     Route: 058
  3. LANTUS [Concomitant]
     Dosage: 48 U, HS
     Route: 058
  4. CELEXA [Concomitant]

REACTIONS (1)
  - Deep vein thrombosis [None]
